FAERS Safety Report 25430873 (Version 1)
Quarter: 2025Q2

REPORT INFORMATION
  Report Type: Report from Study
  Country: PR (occurrence: PR)
  Receive Date: 20250612
  Receipt Date: 20250612
  Transmission Date: 20250717
  Serious: Yes (Hospitalization, Other)
  Sender: ABBVIE
  Company Number: PR-ABBVIE-6314687

PATIENT
  Age: 56 Year
  Sex: Female
  Weight: 74.842 kg

DRUGS (5)
  1. HUMIRA [Suspect]
     Active Substance: ADALIMUMAB
     Indication: Rheumatoid arthritis
     Dosage: CITRATE FREE?FORM STRENGTH: 40 MILLIGRAM
     Route: 058
     Dates: start: 20230403, end: 20250403
  2. METFORMIN [Concomitant]
     Active Substance: METFORMIN HYDROCHLORIDE
     Indication: Product used for unknown indication
  3. IPRATROPIUM [Concomitant]
     Active Substance: IPRATROPIUM
     Indication: Product used for unknown indication
  4. ALBUTEROL [Concomitant]
     Active Substance: ALBUTEROL
     Indication: Product used for unknown indication
  5. ALBUTEROL [Concomitant]
     Active Substance: ALBUTEROL
     Indication: Product used for unknown indication

REACTIONS (16)
  - Depressed level of consciousness [Unknown]
  - Coronary artery disease [Recovering/Resolving]
  - Tremor [Unknown]
  - Vomiting [Recovering/Resolving]
  - Stress [Unknown]
  - Dizziness [Recovered/Resolved with Sequelae]
  - Headache [Unknown]
  - Myocardial infarction [Recovering/Resolving]
  - Palpitations [Unknown]
  - Fear [Unknown]
  - Coordination abnormal [Unknown]
  - Nausea [Recovered/Resolved]
  - Somnolence [Unknown]
  - Pneumonia [Recovered/Resolved]
  - Anxiety [Unknown]
  - Pulmonary oedema [Unknown]

NARRATIVE: CASE EVENT DATE: 20250101
